FAERS Safety Report 7691946-X (Version None)
Quarter: 2011Q3

REPORT INFORMATION
  Report Type: 
  Country: None (occurrence: None)
  Receive Date: 20110818
  Receipt Date: 20110812
  Transmission Date: 20111222
  Serious: Yes (Death, Hospitalization)
  Sender: FDA-Public Use
  Company Number: US-ROCHE-797262

PATIENT
  Age: 50 Year
  Sex: Female

DRUGS (10)
  1. HYDROCHLOROTHIAZIDE [Concomitant]
  2. LYRICA [Concomitant]
  3. ACYCLOVIR [Concomitant]
  4. LEXAPRO [Concomitant]
  5. AVASTIN [Suspect]
     Dosage: LAST DOSE OF AVASTIN ON 3 JULY 2011
     Route: 042
     Dates: start: 20101201
  6. AVASTIN [Suspect]
     Indication: COLORECTAL CANCER
     Route: 042
     Dates: start: 20070301
  7. AMITRIPTYLINE HCL [Concomitant]
  8. WELLBUTRIN [Concomitant]
  9. OMEPRAZOLE [Concomitant]
  10. LISINOPRIL [Concomitant]

REACTIONS (4)
  - DUODENAL ULCER PERFORATION [None]
  - SEPSIS [None]
  - RENAL FAILURE [None]
  - ABDOMINAL PAIN [None]
